FAERS Safety Report 17845042 (Version 1)
Quarter: 2020Q2

REPORT INFORMATION
  Report Type: Spontaneous
  Country: US (occurrence: US)
  Receive Date: 20200529
  Receipt Date: 20200529
  Transmission Date: 20200714
  Serious: Yes (Hospitalization)
  Sender: FDA-Public Use
  Company Number: None

PATIENT
  Age: 59 Year
  Sex: Female
  Weight: 89.78 kg

DRUGS (1)
  1. OPDIVO [Suspect]
     Active Substance: NIVOLUMAB
     Dates: start: 20190708, end: 20200210

REACTIONS (6)
  - Bone lesion [None]
  - Therapy interrupted [None]
  - Respiratory failure [None]
  - Disease progression [None]
  - Respiratory tract neoplasm [None]
  - Haemoptysis [None]

NARRATIVE: CASE EVENT DATE: 20200528
